FAERS Safety Report 7545675-3 (Version None)
Quarter: 2011Q2

REPORT INFORMATION
  Report Type: 
  Country: None (occurrence: None)
  Receive Date: 20110614
  Receipt Date: 20110609
  Transmission Date: 20111010
  Serious: Yes (Hospitalization, Other)
  Sender: FDA-Public Use
  Company Number: FR-BRISTOL-MYERS SQUIBB COMPANY-15821119

PATIENT
  Age: 69 Year
  Sex: Female

DRUGS (10)
  1. TRAMADOL HCL [Concomitant]
  2. MIOREL [Concomitant]
  3. ASPIRIN [Suspect]
     Indication: MYOCARDIAL ISCHAEMIA
  4. COUMADIN [Interacting]
     Indication: ATRIAL FIBRILLATION
     Route: 048
  5. NOROXIN [Interacting]
     Indication: PYELONEPHRITIS
  6. CRESTOR [Concomitant]
  7. TENORMIN [Concomitant]
  8. NEXIUM [Concomitant]
  9. ATACAND [Concomitant]
  10. LASIX [Concomitant]

REACTIONS (4)
  - HAEMOPTYSIS [None]
  - INTERNATIONAL NORMALISED RATIO INCREASED [None]
  - PYELONEPHRITIS [None]
  - DRUG INTERACTION [None]
